FAERS Safety Report 5324101-9 (Version None)
Quarter: 2007Q2

REPORT INFORMATION
  Report Type: 
  Country: None (occurrence: None)
  Receive Date: 20070514
  Receipt Date: 20060424
  Transmission Date: 20071010
  Serious: No
  Sender: FDA-Public Use
  Company Number: A0603027A

PATIENT
  Age: 63 Year
  Sex: Female

DRUGS (2)
  1. NABUMETONE [Suspect]
     Indication: INTERVERTEBRAL DISC DISORDER
     Dosage: 500MG THREE TIMES PER DAY
     Route: 048
  2. NEXIUM [Concomitant]

REACTIONS (1)
  - DRUG INEFFECTIVE [None]
